FAERS Safety Report 14069300 (Version 1)
Quarter: 2017Q4

REPORT INFORMATION
  Report Type: Spontaneous
  Country: CN (occurrence: CN)
  Receive Date: 20171010
  Receipt Date: 20171010
  Transmission Date: 20180321
  Serious: Yes (Other)
  Sender: FDA-Public Use
  Company Number: CN-PFIZER INC-2017431348

PATIENT
  Age: 85 Year
  Sex: Female
  Weight: 45 kg

DRUGS (4)
  1. RIFAMPICIN [Suspect]
     Active Substance: RIFAMPIN
     Indication: INFECTION
     Dosage: 0.45 G, DAILY
     Route: 048
     Dates: start: 20170615, end: 201706
  2. TYGACIL [Suspect]
     Active Substance: TIGECYCLINE
     Dosage: 50 MG, 2X/DAY
     Route: 041
     Dates: start: 20170619, end: 20170621
  3. TYGACIL [Suspect]
     Active Substance: TIGECYCLINE
     Indication: INFECTION
     Dosage: 100 MG, 2X/DAY
     Route: 041
     Dates: start: 20170615, end: 20170619
  4. ISONIAZID. [Suspect]
     Active Substance: ISONIAZID
     Indication: INFECTION
     Dosage: 0.3 G, DAILY
     Route: 048
     Dates: start: 20170615, end: 201706

REACTIONS (2)
  - Liver disorder [Recovering/Resolving]
  - Blood bilirubin increased [Recovering/Resolving]

NARRATIVE: CASE EVENT DATE: 20170619
